FAERS Safety Report 6034634-8 (Version None)
Quarter: 2009Q1

REPORT INFORMATION
  Report Type: 
  Country: None (occurrence: None)
  Receive Date: 20090109
  Receipt Date: 20090109
  Transmission Date: 20090719
  Serious: Yes (Hospitalization, Disabling)
  Sender: FDA-Public Use
  Company Number: None

PATIENT
  Sex: Female

DRUGS (5)
  1. ZOMETA [Suspect]
     Indication: BREAST CANCER
     Dosage: 4 MG MONTHLY IV
     Route: 042
     Dates: start: 20040801, end: 20071201
  2. XELODA [Concomitant]
  3. MS CONTIN [Concomitant]
  4. TANDEM [Concomitant]
  5. GLUTAMINE [Concomitant]

REACTIONS (10)
  - BONE DISORDER [None]
  - INFECTION [None]
  - OEDEMA [None]
  - ORAL CAVITY FISTULA [None]
  - OSTEOLYSIS [None]
  - OSTEONECROSIS [None]
  - PAIN [None]
  - PATHOLOGICAL FRACTURE [None]
  - SOFT TISSUE DISORDER [None]
  - SWELLING [None]
